FAERS Safety Report 18077531 (Version 1)
Quarter: 2020Q3

REPORT INFORMATION
  Report Type: Spontaneous
  Country: IR (occurrence: IR)
  Receive Date: 20200727
  Receipt Date: 20200727
  Transmission Date: 20201103
  Serious: Yes (Death)
  Sender: FDA-Public Use
  Company Number: IR-FRESENIUS KABI-FK202007606

PATIENT
  Age: 55 Year
  Sex: Male

DRUGS (5)
  1. BECLOMETASONE [Suspect]
     Active Substance: BECLOMETHASONE DIPROPIONATE
     Indication: PNEUMONIA
     Dosage: 2 PUFFS, 2X A DAY; EACH PUFF CONTAINS 40 MICROGRAMS
     Route: 055
  2. PANTOPRAZOLE [Concomitant]
     Active Substance: PANTOPRAZOLE
     Indication: PNEUMONIA
     Route: 065
  3. METHYLPREDNISOLONE (MANUFACTURER UNKNOWN) [Suspect]
     Active Substance: METHYLPREDNISOLONE
     Indication: PULMONARY MASS
     Route: 042
  4. BECLOMETASONE [Suspect]
     Active Substance: BECLOMETHASONE DIPROPIONATE
     Indication: PULMONARY MASS
     Route: 065
  5. IPRATROPIUM BROMIDE. [Concomitant]
     Active Substance: IPRATROPIUM BROMIDE
     Indication: PNEUMONIA
     Route: 065

REACTIONS (2)
  - Strongyloidiasis [Fatal]
  - Aspergillus infection [Fatal]
